FAERS Safety Report 24774851 (Version 1)
Quarter: 2024Q4

REPORT INFORMATION
  Report Type: Report from Study
  Country: JP (occurrence: JP)
  Receive Date: 20241226
  Receipt Date: 20241226
  Transmission Date: 20250115
  Serious: Yes (Other)
  Sender: RECORDATI
  Company Number: JP-RECORDATI RARE DISEASE INC.-2024010095

PATIENT

DRUGS (6)
  1. NEOPROFEN [Suspect]
     Active Substance: IBUPROFEN LYSINE
     Indication: Patent ductus arteriosus
     Dosage: 10.00 MILLIGRAM/KILOGRAM
     Route: 042
     Dates: start: 20230411, end: 20230411
  2. NEOPROFEN [Suspect]
     Active Substance: IBUPROFEN LYSINE
     Dosage: 5.00 MILLIGRAM/KILOGRAM
     Route: 042
     Dates: start: 20230412, end: 20230412
  3. NEOPROFEN [Suspect]
     Active Substance: IBUPROFEN LYSINE
     Dosage: 5.00 MILLIGRAM/KILOGRAM
     Route: 042
     Dates: start: 20230413, end: 20230413
  4. NEOPROFEN [Suspect]
     Active Substance: IBUPROFEN LYSINE
     Dosage: 5.00 MILLIGRAM/KILOGRAM
     Route: 042
     Dates: start: 20230419, end: 20230419
  5. NEOPROFEN [Suspect]
     Active Substance: IBUPROFEN LYSINE
     Dosage: 5.00 MILLIGRAM/KILOGRAM
     Route: 042
     Dates: start: 20230420, end: 20230420
  6. NEOPROFEN [Suspect]
     Active Substance: IBUPROFEN LYSINE
     Dosage: 5.00 MILLIGRAM/KILOGRAM
     Route: 042
     Dates: start: 20230421, end: 20230421

REACTIONS (1)
  - Anuria [Recovered/Resolved]

NARRATIVE: CASE EVENT DATE: 20230412
